FAERS Safety Report 7480709-6 (Version None)
Quarter: 2011Q2

REPORT INFORMATION
  Report Type: 
  Country: None (occurrence: None)
  Receive Date: 20110516
  Receipt Date: 20110407
  Transmission Date: 20111010
  Serious: Yes (Hospitalization, Other)
  Sender: FDA-Public Use
  Company Number: US-BAYER-201037242NA

PATIENT
  Age: 21 Year
  Sex: Female
  Weight: 113.38 kg

DRUGS (6)
  1. YASMIN [Suspect]
     Indication: CONTRACEPTION
     Dosage: UNK UNK, UNK
     Route: 048
     Dates: start: 20020101, end: 20070811
  2. BLOOD PRESSURE MEDICATIONS [Concomitant]
  3. POTASSIUM [POTASSIUM] [Concomitant]
  4. EFFEXOR [Concomitant]
     Indication: DEPRESSION
     Dosage: UNK
     Dates: start: 20070415, end: 20071029
  5. ANTIBIOTICS [Concomitant]
  6. NSAID'S [Concomitant]

REACTIONS (2)
  - PULMONARY EMBOLISM [None]
  - INJURY [None]
